FAERS Safety Report 10967154 (Version 1)
Quarter: 2015Q1

REPORT INFORMATION
  Report Type: Spontaneous
  Country: US (occurrence: None)
  Receive Date: 20150327
  Receipt Date: 20150327
  Transmission Date: 20150721
  Serious: Yes (Life-Threatening, Hospitalization)
  Sender: FDA-Public Use
  Company Number: None

PATIENT
  Age: 68 Year
  Sex: Male
  Weight: 72.58 kg

DRUGS (15)
  1. CHLORHEXIDINE (PERIDEX) [Concomitant]
  2. TIMOLOL MALEATE (TIMOPTIC) [Concomitant]
  3. MAGNESIUM HYDROXIDE (MILK OF MAGNESIA) [Concomitant]
  4. ALUMINUM-MAGNESIUM-SIMETHICONE (MAALOX; MYLANTA) [Concomitant]
  5. DOCUSATE SODIIUIM (COLACE) [Concomitant]
  6. RISPERIDONE (RISPERDAL) [Concomitant]
  7. ASPIRIN. [Concomitant]
     Active Substance: ASPIRIN
  8. CLOZAPINE 100 MG TEVA [Suspect]
     Active Substance: CLOZAPINE
     Indication: SCHIZOPHRENIA, PARANOID TYPE
     Route: 048
     Dates: start: 20141111, end: 20141118
  9. CLOZAPINE (CLOZARIL) [Concomitant]
     Active Substance: CLOZAPINE
  10. LORAZEPAM (ATIVAN) [Concomitant]
  11. HALOPERIDOL LACTATE (HALDOL) [Concomitant]
  12. BISACODYL EC (DULCOLAX) [Concomitant]
  13. GABAPENTIN (NEURONTIN) [Concomitant]
  14. BENZTROPINE (COGENTIN) [Concomitant]
  15. VITAMIN D (CHOLECALCIFEROL) [Concomitant]

REACTIONS (1)
  - Febrile neutropenia [None]

NARRATIVE: CASE EVENT DATE: 20141118
